FAERS Safety Report 15117706 (Version 3)
Quarter: 2018Q3

REPORT INFORMATION
  Report Type: Report from Study
  Country: US (occurrence: US)
  Receive Date: 20180706
  Receipt Date: 20180830
  Transmission Date: 20181010
  Serious: Yes (Hospitalization, Other)
  Sender: FDA-Public Use
  Company Number: US-ACTELION-A-US2018-174747

PATIENT
  Age: 63 Year
  Sex: Female

DRUGS (31)
  1. CEPHALEXIN. [Concomitant]
     Active Substance: CEPHALEXIN
  2. MYRBETRIQ [Concomitant]
     Active Substance: MIRABEGRON
  3. FUROSEMIDE. [Concomitant]
     Active Substance: FUROSEMIDE
  4. MULTIVITAMIN [Concomitant]
     Active Substance: VITAMINS
  5. TRACLEER [Suspect]
     Active Substance: BOSENTAN
     Indication: PULMONARY ARTERIAL HYPERTENSION
     Dosage: 125 MG, BID
     Route: 048
     Dates: start: 20140828
  6. METHIMAZOLE. [Concomitant]
     Active Substance: METHIMAZOLE
  7. PROAIR HFA [Concomitant]
     Active Substance: ALBUTEROL SULFATE
  8. PANTOPRAZOLE [Concomitant]
     Active Substance: PANTOPRAZOLE
  9. CALCIUM CITRATE WITH VITAMIN D [Concomitant]
     Active Substance: CALCIUM CITRATE\VITAMIN D
  10. SPIRONOLACTONE. [Concomitant]
     Active Substance: SPIRONOLACTONE
  11. WARFARIN [Concomitant]
     Active Substance: WARFARIN
  12. QVAR [Concomitant]
     Active Substance: BECLOMETHASONE DIPROPIONATE
  13. FLONASE [Concomitant]
     Active Substance: FLUTICASONE PROPIONATE
  14. LASIX [Concomitant]
     Active Substance: FUROSEMIDE
  15. VITAMIN B COMPLEX [Concomitant]
     Active Substance: CYANOCOBALAMIN\DEXPANTHENOL\NIACINAMIDE\PYRIDOXINE HYDROCHLORIDE\RIBOFLAVIN 5^-PHOSPHATE SODIUM\THIAMINE HYDROCHLORIDE\VITAMIN B COMPLEX
  16. GAS?X [Concomitant]
     Active Substance: DIMETHICONE
  17. SILDENAFIL. [Concomitant]
     Active Substance: SILDENAFIL
  18. VITAMIN D3 [Concomitant]
     Active Substance: CHOLECALCIFEROL
  19. TYLENOL [Concomitant]
     Active Substance: ACETAMINOPHEN
  20. TROSPIUM [Concomitant]
     Active Substance: TROSPIUM
  21. CHONDROITIN [Concomitant]
     Active Substance: CHONDROITIN
  22. EPINEPHRINE. [Concomitant]
     Active Substance: EPINEPHRINE
  23. LITHIUM CARBONATE. [Concomitant]
     Active Substance: LITHIUM CARBONATE
     Dosage: 300 MG, TID
     Dates: start: 20170103
  24. IMIPRAMINE HCL [Concomitant]
     Active Substance: IMIPRAMINE HYDROCHLORIDE
     Dosage: 25 MG, BID
     Dates: start: 20170103
  25. ALBUTEROL. [Concomitant]
     Active Substance: ALBUTEROL
  26. CLARITIN [Concomitant]
     Active Substance: LORATADINE
  27. OMEGA 3 6 9 [Concomitant]
     Active Substance: FISH OIL
  28. ROCEPHIN [Concomitant]
     Active Substance: CEFTRIAXONE SODIUM
  29. CODEINE PHOSPHATE W/PARACETAMOL [Concomitant]
     Active Substance: ACETAMINOPHEN\CODEINE PHOSPHATE
  30. DILTIAZEM. [Concomitant]
     Active Substance: DILTIAZEM
  31. BENZONATATE. [Concomitant]
     Active Substance: BENZONATATE

REACTIONS (2)
  - Intraocular melanoma [Unknown]
  - Eye operation [Unknown]

NARRATIVE: CASE EVENT DATE: 20180626
